FAERS Safety Report 9805676 (Version 1)
Quarter: 2014Q1

REPORT INFORMATION
  Report Type: Spontaneous
  Country: US (occurrence: None)
  Receive Date: 20140107
  Receipt Date: 20140107
  Transmission Date: 20141002
  Serious: Yes (Death)
  Sender: FDA-Public Use
  Company Number: 2013P1022307

PATIENT
  Age: 47 Year
  Sex: Male

DRUGS (1)
  1. FENTANYL [Suspect]
     Route: 062

REACTIONS (1)
  - Death [None]
